FAERS Safety Report 5088992-1 (Version None)
Quarter: 2006Q3

REPORT INFORMATION
  Report Type: 
  Country: None (occurrence: None)
  Receive Date: 20060825
  Receipt Date: 20050901
  Transmission Date: 20061208
  Serious: Yes (Hospitalization)
  Sender: FDA-Public Use
  Company Number: US-ROCHE-416431

PATIENT
  Age: 34 Year
  Sex: Male

DRUGS (20)
  1. CAPECITABINE [Suspect]
     Indication: THYROID CANCER METASTATIC
     Dosage: DOSE EQUATES TO 2000MG.  TWO WEEKS TREATMENT FOLLOWED BY TWO WEEKS REST.
     Route: 065
     Dates: end: 20050705
  2. CAPECITABINE [Suspect]
     Dosage: TWO WEEKS TREATMENT FOLLOWED BY TWO WEEKS REST.
     Route: 065
     Dates: start: 20050712
  3. IROFULVEN [Suspect]
     Indication: THYROID CANCER METASTATIC
     Dosage: DOSE EQUATES TO 31.5MG.
     Route: 065
  4. CALCIUM GLUCONATE [Concomitant]
     Route: 048
  5. 1ALPHA,25-DIHYDROXYCHOLECALCIFEROL [Concomitant]
     Route: 048
  6. POTASSIUM [Concomitant]
     Route: 048
  7. OXYCODONE HCL [Concomitant]
     Indication: PAIN
     Route: 048
  8. GABAPENTIN [Concomitant]
     Indication: PAIN
     Route: 048
  9. HYDROMORPHONE HYDROCHLORIDE [Concomitant]
     Indication: PAIN
     Dosage: AS NEEDED.
     Route: 048
  10. 1 CONCOMITANT DRUG [Concomitant]
     Indication: PAIN
     Dosage: HYDROCODONE WITH ACETAMINOPHEN DAILY AS NEEDED
     Route: 048
  11. DOCUSATE SODIUM [Concomitant]
     Indication: CONSTIPATION PROPHYLAXIS
     Dosage: DAILY
     Route: 048
  12. DRONABINOL [Concomitant]
     Dosage: DAILY
     Route: 048
  13. MULTIVITAMIN NOS [Concomitant]
     Indication: UNEVALUABLE EVENT
     Route: 048
  14. ASCORBIC ACID [Concomitant]
     Indication: UNEVALUABLE EVENT
     Route: 048
  15. ALENDRONATE SODIUM [Concomitant]
     Dosage: FREQUENCY NOT REPORTED.
     Route: 048
  16. LEVOTHYROXINE SODIUM [Concomitant]
     Indication: THYROID THERAPY
     Dosage: DOSE ALTERNATING DAILY BETWEEN 175MCG AND 200MCG.
  17. ONDANSETRON HCL [Concomitant]
     Indication: NAUSEA
     Route: 048
  18. LORAZEPAM [Concomitant]
     Indication: NAUSEA
     Dosage: AS NEEDED.
     Route: 060
  19. PROCHLORPERAZINE TAB [Concomitant]
     Indication: NAUSEA
     Route: 048
  20. METOCLOPRAMIDE [Concomitant]
     Indication: GASTROINTESTINAL HYPERMOTILITY
     Route: 048

REACTIONS (6)
  - ABDOMINAL PAIN UPPER [None]
  - DEHYDRATION [None]
  - MALIGNANT NEOPLASM PROGRESSION [None]
  - NAUSEA [None]
  - PANCREATITIS [None]
  - VOMITING [None]
